FAERS Safety Report 9746010 (Version 1)
Quarter: 2013Q4

REPORT INFORMATION
  Report Type: Report from Study
  Country: BR (occurrence: BR)
  Receive Date: 20131211
  Receipt Date: 20131211
  Transmission Date: 20140711
  Serious: Yes (Death)
  Sender: FDA-Public Use
  Company Number: PHHY2013BR144562

PATIENT
  Sex: Male
  Weight: 79 kg

DRUGS (1)
  1. FORASEQ [Suspect]
     Indication: LUNG DISORDER
     Dosage: UNK

REACTIONS (2)
  - Aortic aneurysm [Fatal]
  - Arteriosclerosis [Fatal]
